FAERS Safety Report 7341143-2 (Version None)
Quarter: 2011Q1

REPORT INFORMATION
  Report Type: 
  Country: None (occurrence: None)
  Receive Date: 20110309
  Receipt Date: 20110302
  Transmission Date: 20110831
  Serious: Yes (Congenital Anomaly)
  Sender: FDA-Public Use
  Company Number: A0917038A

PATIENT
  Sex: Male

DRUGS (1)
  1. PAXIL [Suspect]
     Indication: SOCIAL PHOBIA
     Dosage: 20MG PER DAY
     Route: 064

REACTIONS (10)
  - HYPOSPADIAS [None]
  - TESTICULAR RETRACTION [None]
  - HYDROCELE [None]
  - ABDOMINAL HERNIA [None]
  - LARYNGOMALACIA [None]
  - POLAND'S SYNDROME [None]
  - CONGENITAL MUSCULOSKELETAL ANOMALY [None]
  - VASCULAR ANOMALY [None]
  - DRUG EXPOSURE DURING PREGNANCY [None]
  - RESPIRATORY DISORDER [None]
